FAERS Safety Report 23517797 (Version 5)
Quarter: 2024Q4

REPORT INFORMATION
  Report Type: Other
  Country: FR (occurrence: FR)
  Receive Date: 20240213
  Receipt Date: 20241113
  Transmission Date: 20250115
  Serious: Yes (Hospitalization, Other)
  Sender: INCYTE
  Company Number: FR-UCBSA-2024006122

PATIENT

DRUGS (4)
  1. PEMAZYRE [Suspect]
     Active Substance: PEMIGATINIB
     Indication: Glioblastoma
     Dosage: 13.5 MILLIGRAM, ONCE DAILY (QD)
     Route: 048
     Dates: start: 20230927, end: 20231010
  2. PEMAZYRE [Suspect]
     Active Substance: PEMIGATINIB
     Dosage: 13.5 MILLIGRAM, ONCE DAILY (QD)
     Route: 048
     Dates: start: 20240110, end: 20240118
  3. PEMAZYRE [Suspect]
     Active Substance: PEMIGATINIB
     Dosage: 13.5 MILLIGRAM, ONCE DAILY (QD)
     Route: 048
     Dates: start: 20240201, end: 20240214
  4. KEPPRA [Suspect]
     Active Substance: LEVETIRACETAM
     Indication: Seizure
     Dosage: UNK
     Route: 065
     Dates: start: 20240122, end: 202401

REACTIONS (3)
  - Seizure [Recovered/Resolved]
  - Stroke-like migraine attacks after radiation therapy [Recovered/Resolved]
  - Headache [Unknown]

NARRATIVE: CASE EVENT DATE: 20240116
